FAERS Safety Report 4393842-2 (Version None)
Quarter: 2004Q3

REPORT INFORMATION
  Report Type: 
  Country: None (occurrence: None)
  Receive Date: 20040701
  Receipt Date: 20040621
  Transmission Date: 20050211
  Serious: Yes (Hospitalization)
  Sender: FDA-Public Use
  Company Number: US-JNJFOC-20040305819

PATIENT
  Age: 51 Year
  Sex: Female

DRUGS (5)
  1. REMICADE [Suspect]
     Indication: RHEUMATOID ARTHRITIS
     Dosage: INTRAVENOUS
     Route: 042
     Dates: start: 20031117
  2. METHOTREXATE [Concomitant]
  3. PLAQUENIL [Concomitant]
  4. CELEBREX [Concomitant]
  5. SYNTHROID [Concomitant]

REACTIONS (1)
  - ORTHOSTATIC HYPOTENSION [None]
